FAERS Safety Report 6619576-9 (Version None)
Quarter: 2010Q1

REPORT INFORMATION
  Report Type: 
  Country: None (occurrence: None)
  Receive Date: 20100309
  Receipt Date: 20100301
  Transmission Date: 20100710
  Serious: Yes (Other)
  Sender: FDA-Public Use
  Company Number: ES-BIOGENIDEC-2010BI005271

PATIENT
  Age: 30 Year
  Sex: Female
  Weight: 72 kg

DRUGS (5)
  1. TYSABRI [Suspect]
     Indication: MULTIPLE SCLEROSIS
     Route: 042
     Dates: start: 20090819
  2. ORAL CONTRACEPTIVE [Concomitant]
     Route: 048
  3. LYRICA [Concomitant]
  4. SUMIAL [Concomitant]
  5. OMEPRAZOL [Concomitant]

REACTIONS (1)
  - STEVENS-JOHNSON SYNDROME [None]
